FAERS Safety Report 6629636-4 (Version None)
Quarter: 2010Q1

REPORT INFORMATION
  Report Type: 
  Country: None (occurrence: None)
  Receive Date: 20100311
  Receipt Date: 20100301
  Transmission Date: 20100710
  Serious: Yes (Other)
  Sender: FDA-Public Use
  Company Number: GR-PFIZER INC-2010025723

PATIENT
  Age: 65 Year
  Sex: Male

DRUGS (1)
  1. VIAGRA [Suspect]
     Indication: ERECTILE DYSFUNCTION
     Dosage: 1 DF, 1X/DAY
     Route: 048
     Dates: start: 20100101, end: 20100201

REACTIONS (1)
  - ALANINE AMINOTRANSFERASE INCREASED [None]
